FAERS Safety Report 14765683 (Version 1)
Quarter: 2018Q2

REPORT INFORMATION
  Report Type: Spontaneous
  Country: US (occurrence: US)
  Receive Date: 20180410
  Receipt Date: 20180410
  Transmission Date: 20180711
  Serious: No
  Sender: FDA-Public Use
  Company Number: None

PATIENT
  Age: 73 Year
  Sex: Male
  Weight: 68.04 kg

DRUGS (4)
  1. COLESTROL [Concomitant]
  2. GERT^S MEDICATION [Concomitant]
  3. BLOOD PRESSURE [Concomitant]
  4. PROLIA [Suspect]
     Active Substance: DENOSUMAB
     Indication: OSTEOPOROSIS
     Dosage: ?          QUANTITY:1 DF DOSAGE FORM;OTHER FREQUENCY:2 TIMES/YEAR;?
     Dates: start: 20130501, end: 20161101

REACTIONS (2)
  - Osteonecrosis [None]
  - Jaw disorder [None]

NARRATIVE: CASE EVENT DATE: 20130501
